FAERS Safety Report 15782378 (Version 1)
Quarter: 2019Q1

REPORT INFORMATION
  Report Type: Report from Study
  Country: FR (occurrence: FR)
  Receive Date: 20190102
  Receipt Date: 20190102
  Transmission Date: 20190417
  Serious: Yes (Other)
  Sender: FDA-Public Use
  Company Number: FR-JNJFOC-20181227821

PATIENT
  Sex: Male
  Weight: 95 kg

DRUGS (2)
  1. STELARA [Suspect]
     Active Substance: USTEKINUMAB
     Indication: PSORIASIS
     Route: 058
     Dates: start: 20180507, end: 20180607
  2. LYMECYCLINE [Concomitant]
     Active Substance: LYMECYCLINE
     Route: 065
     Dates: start: 20180326, end: 20180507

REACTIONS (3)
  - Wound infection [Recovered/Resolved]
  - Balance disorder [Recovered/Resolved]
  - Allergy to arthropod sting [Recovered/Resolved]

NARRATIVE: CASE EVENT DATE: 201805
